FAERS Safety Report 4737736-9 (Version None)
Quarter: 2005Q3

REPORT INFORMATION
  Report Type: 
  Country: None (occurrence: None)
  Receive Date: 20050805
  Receipt Date: 20050728
  Transmission Date: 20060218
  Serious: Yes (Other)
  Sender: FDA-Public Use
  Company Number: 200513074BCC

PATIENT
  Age: 61 Year
  Sex: Female
  Weight: 74.8435 kg

DRUGS (2)
  1. ALKA SELTZER EFFERVESCENT COLD [Suspect]
     Indication: NASOPHARYNGITIS
     Dosage: ORAL
     Route: 048
     Dates: start: 20020101
  2. CORGARD [Concomitant]

REACTIONS (2)
  - CONDITION AGGRAVATED [None]
  - MITRAL VALVE PROLAPSE [None]
